FAERS Safety Report 7954462-3 (Version None)
Quarter: 2011Q4

REPORT INFORMATION
  Report Type: 
  Country: None (occurrence: None)
  Receive Date: 20111202
  Receipt Date: 20111128
  Transmission Date: 20120403
  Serious: Yes (Other)
  Sender: FDA-Public Use
  Company Number: CA-ABBOTT-11P-028-0874658-00

PATIENT
  Sex: Male
  Weight: 74.5 kg

DRUGS (1)
  1. HUMIRA [Suspect]
     Indication: CROHN'S DISEASE
     Route: 058
     Dates: start: 20110101, end: 20110101

REACTIONS (4)
  - HAEMOGLOBIN DECREASED [None]
  - VITAMIN B12 DECREASED [None]
  - ANAEMIA [None]
  - SERUM FERRITIN DECREASED [None]
